FAERS Safety Report 12746187 (Version 2)
Quarter: 2016Q4

REPORT INFORMATION
  Report Type: Spontaneous
  Country: US (occurrence: US)
  Receive Date: 20160915
  Receipt Date: 20161201
  Transmission Date: 20170207
  Serious: Yes (Death, Hospitalization)
  Sender: FDA-Public Use
  Company Number: US-WEST-WARD PHARMACEUTICALS CORP.-US-H14001-16-01820

PATIENT
  Age: 51 Year
  Sex: Male
  Weight: 87.17 kg

DRUGS (1)
  1. NAPROXEN. [Suspect]
     Active Substance: NAPROXEN
     Indication: PRODUCT USED FOR UNKNOWN INDICATION
     Route: 065

REACTIONS (6)
  - Completed suicide [Fatal]
  - Intentional overdose [Fatal]
  - Cardiac arrest [Fatal]
  - Coma [Fatal]
  - Pneumonia [Fatal]
  - Toxicity to various agents [Fatal]
